FAERS Safety Report 6578294-6 (Version None)
Quarter: 2010Q1

REPORT INFORMATION
  Report Type: 
  Country: None (occurrence: None)
  Receive Date: 20100211
  Receipt Date: 20100205
  Transmission Date: 20100710
  Serious: Yes (Hospitalization)
  Sender: FDA-Public Use
  Company Number: B0631520A

PATIENT
  Sex: Female

DRUGS (2)
  1. CLAMOXYL [Suspect]
     Indication: TOOTH DISORDER
     Route: 048
     Dates: start: 20090520, end: 20090520
  2. EFFERALGAN [Concomitant]
     Indication: TOOTH DISORDER
     Route: 048
     Dates: start: 20090520, end: 20090520

REACTIONS (12)
  - ANGIOEDEMA [None]
  - ANXIETY [None]
  - DYSPHAGIA [None]
  - GENERALISED OEDEMA [None]
  - PRURITUS [None]
  - PURPURA [None]
  - PYREXIA [None]
  - RASH MACULAR [None]
  - SCAR [None]
  - SKIN WARM [None]
  - TOXIC SKIN ERUPTION [None]
  - URTICARIA [None]
